FAERS Safety Report 23798434 (Version 2)
Quarter: 2024Q2

REPORT INFORMATION
  Report Type: Spontaneous
  Country: PT (occurrence: PT)
  Receive Date: 20240430
  Receipt Date: 20240520
  Transmission Date: 20240715
  Serious: Yes (Hospitalization, Other)
  Sender: FDA-Public Use
  Company Number: None

PATIENT

DRUGS (6)
  1. THIOTEPA [Suspect]
     Active Substance: THIOTEPA
     Indication: Retinoblastoma
     Route: 065
  2. CARBOPLATIN [Suspect]
     Active Substance: CARBOPLATIN
     Indication: Retinoblastoma
     Dosage: BDF
     Route: 065
  3. CYCLOPHOSPHAMIDE [Suspect]
     Active Substance: CYCLOPHOSPHAMIDE
     Indication: Retinoblastoma
     Dosage: FOUR CYCLES
     Route: 065
  4. ETOPOSIDE [Suspect]
     Active Substance: ETOPOSIDE
     Indication: Off label use
     Dosage: FOUR CYCLES
     Route: 065
  5. CISPLATIN [Concomitant]
     Active Substance: CISPLATIN
     Indication: Retinoblastoma
     Dosage: FOUR CYCLES
     Route: 065
  6. VINCRISTINE [Concomitant]
     Active Substance: VINCRISTINE
     Indication: Retinoblastoma
     Dosage: FOUR CYCLES
     Route: 065

REACTIONS (8)
  - Toxicity to various agents [Unknown]
  - Stomatitis [Unknown]
  - Oesophagitis [Unknown]
  - Systemic toxicity [Unknown]
  - Herpes simplex [Unknown]
  - Retinitis viral [Unknown]
  - Bone marrow failure [Recovered/Resolved]
  - Cytomegalovirus infection [Unknown]
